FAERS Safety Report 5354843-0 (Version None)
Quarter: 2007Q2

REPORT INFORMATION
  Report Type: 
  Country: None (occurrence: None)
  Receive Date: 20070611
  Receipt Date: 20070525
  Transmission Date: 20071010
  Serious: Yes (Other)
  Sender: FDA-Public Use
  Company Number: 008387

PATIENT
  Age: 26 Year
  Sex: Female

DRUGS (5)
  1. CLARAVIS [Suspect]
     Dosage: 40 MG, BID, ORAL
     Route: 048
     Dates: start: 20060207, end: 20060813
  2. ORTHO TRI-CYCLEN LO [Suspect]
     Indication: ORAL CONTRACEPTION
     Dosage: 1 TABLET, QD, ORAL
     Route: 048
  3. CHITOSAN (POLIGLUSAM) [Concomitant]
  4. ISOTRIM (SULFAMETHOXAZOLE, TRIMETHOPRIM) [Concomitant]
  5. VITA-PAK [Concomitant]

REACTIONS (5)
  - DRUG DOSE OMISSION [None]
  - DRUG EXPOSURE DURING PREGNANCY [None]
  - RUBELLA ANTIBODY POSITIVE [None]
  - TREATMENT NONCOMPLIANCE [None]
  - UNINTENDED PREGNANCY [None]
